FAERS Safety Report 12298927 (Version 1)
Quarter: 2016Q2

REPORT INFORMATION
  Report Type: Spontaneous
  Country: US (occurrence: None)
  Receive Date: 20160422
  Receipt Date: 20160422
  Transmission Date: 20160815
  Serious: No
  Sender: FDA-Public Use
  Company Number: None

PATIENT
  Sex: Male

DRUGS (1)
  1. HEMOTREAT [Suspect]
     Active Substance: CAMPHOR (SYNTHETIC)\FAT, HARD\LANOLIN\PETROLATUM

REACTIONS (3)
  - Product formulation issue [None]
  - Product quality issue [None]
  - Product label issue [None]

NARRATIVE: CASE EVENT DATE: 20160420
